FAERS Safety Report 13533307 (Version 1)
Quarter: 2017Q2

REPORT INFORMATION
  Report Type: Spontaneous
  Country: US (occurrence: US)
  Receive Date: 20170510
  Receipt Date: 20170510
  Transmission Date: 20170830
  Serious: Yes (Hospitalization, Other)
  Sender: FDA-Public Use
  Company Number: US-BAYER-2017-083534

PATIENT
  Sex: Male
  Weight: 77 kg

DRUGS (6)
  1. TIMOLOL. [Concomitant]
     Active Substance: TIMOLOL
     Dosage: UNK
  2. HYDROCHLOROTHIAZIDE. [Concomitant]
     Active Substance: HYDROCHLOROTHIAZIDE
     Dosage: UNK
  3. BAYER LOW DOSE [Suspect]
     Active Substance: ASPIRIN
     Indication: ISCHAEMIC HEART DISEASE PROPHYLAXIS
     Dosage: 1 DF, QOD
     Route: 048
  4. MVI [VITAMINS NOS] [Concomitant]
     Dosage: UNK
  5. NIZATIDINE. [Concomitant]
     Active Substance: NIZATIDINE
     Dosage: UNK
  6. MULTAQ [Concomitant]
     Active Substance: DRONEDARONE
     Dosage: UNK

REACTIONS (1)
  - Haemorrhage [Recovered/Resolved]
